FAERS Safety Report 17879385 (Version 1)
Quarter: 2020Q2

REPORT INFORMATION
  Report Type: Spontaneous
  Country: US (occurrence: US)
  Receive Date: 20200610
  Receipt Date: 20200610
  Transmission Date: 20200714
  Serious: No
  Sender: FDA-Public Use
  Company Number: US-TAKEDA-2020TUS025671

PATIENT
  Age: 69 Year
  Sex: Female

DRUGS (2)
  1. PREVACID [Suspect]
     Active Substance: LANSOPRAZOLE
     Indication: GASTROOESOPHAGEAL REFLUX DISEASE
     Dosage: 30 MILLIGRAM, QD
     Route: 048
  2. PREVACID [Suspect]
     Active Substance: LANSOPRAZOLE
     Indication: ULCER

REACTIONS (3)
  - Product dose omission [Not Recovered/Not Resolved]
  - No adverse event [Unknown]
  - Inappropriate schedule of product administration [Not Recovered/Not Resolved]
